FAERS Safety Report 8960429 (Version 1)
Quarter: 2012Q4

REPORT INFORMATION
  Report Type: 
  Country: US (occurrence: US)
  Receive Date: 20121211
  Receipt Date: 20121211
  Transmission Date: 20130627
  Serious: Yes (Disabling, Other)
  Sender: FDA-Public Use
  Company Number: CHPA2012US024700

PATIENT
  Age: 69 Year
  Sex: Female

DRUGS (7)
  1. CONTROL PLP [Suspect]
     Indication: SMOKING CESSATION THERAPY
     Dosage: 21 mg, daily
     Route: 062
     Dates: start: 20121107
  2. LEVOFLAXIN [Concomitant]
     Indication: PNEUMONIA
     Dosage: UNK
     Route: 048
     Dates: start: 20121107
  3. ANTIDEPRESSANTS [Concomitant]
     Route: 048
  4. ADVAIR [Concomitant]
     Indication: DYSPNOEA
  5. NEXUM [Concomitant]
     Route: 048
  6. VYTORIN [Concomitant]
     Route: 048
  7. ASPIRIN [Concomitant]
     Route: 048

REACTIONS (7)
  - Activities of daily living impaired [Not Recovered/Not Resolved]
  - Myalgia [Not Recovered/Not Resolved]
  - Cold sweat [Not Recovered/Not Resolved]
  - Tremor [Not Recovered/Not Resolved]
  - Muscle spasms [Not Recovered/Not Resolved]
  - Dizziness [Not Recovered/Not Resolved]
  - Headache [Not Recovered/Not Resolved]
